FAERS Safety Report 9705621 (Version 1)
Quarter: 2013Q4

REPORT INFORMATION
  Report Type: Spontaneous
  Country: US (occurrence: US)
  Receive Date: 20131122
  Receipt Date: 20131122
  Transmission Date: 20140711
  Serious: No
  Sender: FDA-Public Use
  Company Number: US-GILEAD-2008-0017253

PATIENT
  Age: 65 Year
  Sex: Male

DRUGS (12)
  1. LETAIRIS [Suspect]
     Indication: PULMONARY HYPERTENSION
     Route: 048
     Dates: start: 20080624
  2. FUROSEMIDE [Concomitant]
     Indication: OEDEMA
     Route: 048
  3. FUROSEMIDE [Concomitant]
     Indication: HYPERTENSION
  4. METOLAZONE [Concomitant]
     Indication: OEDEMA
     Route: 048
  5. METOLAZONE [Concomitant]
     Indication: HYPERTENSION
  6. SOTALOL [Concomitant]
     Indication: ATRIAL FLUTTER
     Route: 048
  7. WARFARIN [Concomitant]
     Indication: ANTICOAGULANT THERAPY
     Route: 048
  8. VIAGRA [Concomitant]
     Indication: ERECTILE DYSFUNCTION
     Route: 048
  9. ASPIRIN [Concomitant]
     Indication: PROPHYLAXIS
     Route: 048
  10. AVODART [Concomitant]
     Indication: BENIGN PROSTATIC HYPERPLASIA
     Route: 048
  11. SIMVASTATIN [Concomitant]
     Indication: BLOOD CHOLESTEROL INCREASED
     Route: 048
  12. ALPRAZOLAM [Concomitant]
     Indication: ANXIETY
     Route: 048

REACTIONS (1)
  - Local swelling [Recovered/Resolved]
